FAERS Safety Report 20861926 (Version 1)
Quarter: 2022Q2

REPORT INFORMATION
  Report Type: Spontaneous
  Country: US (occurrence: None)
  Receive Date: 20220520
  Receipt Date: 20220520
  Transmission Date: 20220721
  Serious: Yes (Other)
  Sender: FDA-Public Use
  Company Number: None

PATIENT
  Age: 37 Year
  Sex: Female
  Weight: 90 kg

DRUGS (1)
  1. MONTELUKAST [Suspect]
     Active Substance: MONTELUKAST SODIUM
     Indication: Hypersensitivity

REACTIONS (5)
  - Suicidal ideation [None]
  - Depression [None]
  - Anxiety [None]
  - Asthenia [None]
  - Obsessive-compulsive disorder [None]

NARRATIVE: CASE EVENT DATE: 20220520
